FAERS Safety Report 6921602-4 (Version None)
Quarter: 2010Q3

REPORT INFORMATION
  Report Type: 
  Country: None (occurrence: None)
  Receive Date: 20100812
  Receipt Date: 20100806
  Transmission Date: 20110219
  Serious: Yes (Life-Threatening, Other)
  Sender: FDA-Public Use
  Company Number: JP-MERCK-1002USA00935

PATIENT
  Age: 85 Year
  Sex: Male
  Weight: 63 kg

DRUGS (7)
  1. JANUVIA [Suspect]
     Indication: DIABETES MELLITUS
     Route: 048
     Dates: start: 20100118, end: 20100122
  2. AMARYL [Concomitant]
     Route: 048
     Dates: end: 20100801
  3. CRESTOR [Concomitant]
     Route: 048
     Dates: start: 20090501, end: 20100801
  4. MAGMITT [Concomitant]
     Route: 048
     Dates: end: 20100801
  5. KAKKON-TO [Concomitant]
     Route: 048
     Dates: end: 20100801
  6. GASCON [Concomitant]
     Route: 048
     Dates: start: 20080301, end: 20100801
  7. HARNAL [Concomitant]
     Route: 048
     Dates: end: 20100801

REACTIONS (2)
  - ATRIAL FIBRILLATION [None]
  - TACHYCARDIA [None]
